FAERS Safety Report 15348988 (Version 3)
Quarter: 2018Q3

REPORT INFORMATION
  Report Type: Report from Study
  Country: FR (occurrence: FR)
  Receive Date: 20180904
  Receipt Date: 20180920
  Transmission Date: 20181010
  Serious: Yes (Other)
  Sender: FDA-Public Use
  Company Number: FR-TAKEDA-2018TUS023713

PATIENT
  Age: 60 Year
  Sex: Female
  Weight: 89 kg

DRUGS (4)
  1. COUMADINE [Concomitant]
     Active Substance: WARFARIN SODIUM
     Indication: THROMBOSIS
  2. COUMADINE [Concomitant]
     Active Substance: WARFARIN SODIUM
     Indication: PULMONARY EMBOLISM
     Dosage: 6 MG, QD
     Route: 065
     Dates: start: 2015
  3. BRIGATINIB [Suspect]
     Active Substance: BRIGATINIB
     Dosage: 120 MG, QD
     Route: 048
     Dates: start: 20180720
  4. BRIGATINIB [Suspect]
     Active Substance: BRIGATINIB
     Indication: NON-SMALL CELL LUNG CANCER
     Dosage: 180 MG, QD
     Route: 048
     Dates: start: 20180621, end: 20180710

REACTIONS (7)
  - Hepatotoxicity [Recovering/Resolving]
  - Blood creatine phosphokinase increased [Recovering/Resolving]
  - Aspartate aminotransferase increased [Recovering/Resolving]
  - Cholestasis [Unknown]
  - Hepatocellular injury [Recovering/Resolving]
  - Alanine aminotransferase increased [Recovering/Resolving]
  - Amino acid level increased [Recovering/Resolving]

NARRATIVE: CASE EVENT DATE: 20180709
